FAERS Safety Report 4989572-6 (Version None)
Quarter: 2006Q2

REPORT INFORMATION
  Report Type: 
  Country: None (occurrence: None)
  Receive Date: 20060426
  Receipt Date: 20060417
  Transmission Date: 20061013
  Serious: Yes (Other)
  Sender: FDA-Public Use
  Company Number: 2006051493

PATIENT
  Age: 32 Year
  Sex: Female
  Weight: 74.8435 kg

DRUGS (4)
  1. BENADRYL [Suspect]
     Indication: HYPERSENSITIVITY
     Dosage: 1 KAPSEAL , ORAL
     Route: 048
     Dates: start: 20060101, end: 20060414
  2. BENADRYL [Suspect]
  3. BENADRYL [Suspect]
     Indication: PRURITUS
     Dosage: TOPICAL
     Route: 061
     Dates: start: 20060101
  4. METOPROLOL TARTRATE [Concomitant]

REACTIONS (5)
  - HEADACHE [None]
  - PRURITUS GENERALISED [None]
  - RASH GENERALISED [None]
  - RASH PRURITIC [None]
  - URTICARIA [None]
